FAERS Safety Report 13449372 (Version 1)
Quarter: 2017Q2

REPORT INFORMATION
  Report Type: Report from Study
  Country: IT (occurrence: IT)
  Receive Date: 20170417
  Receipt Date: 20170417
  Transmission Date: 20170830
  Serious: Yes (Hospitalization)
  Sender: FDA-Public Use
  Company Number: IT-ALLERGAN-1714802US

PATIENT
  Age: 61 Year
  Sex: Male

DRUGS (1)
  1. ESCITALOPRAM OXALATE UNK [Suspect]
     Active Substance: ESCITALOPRAM OXALATE
     Indication: PRODUCT USED FOR UNKNOWN INDICATION
     Dosage: 20 TABLETS, OVERDOSE
     Route: 048

REACTIONS (5)
  - Drug use disorder [Unknown]
  - Overdose [Unknown]
  - Restlessness [Unknown]
  - Asthenia [Unknown]
  - Agitation [Unknown]

NARRATIVE: CASE EVENT DATE: 20170214
